FAERS Safety Report 6187872-8 (Version None)
Quarter: 2009Q2

REPORT INFORMATION
  Report Type: 
  Country: None (occurrence: None)
  Receive Date: 20090513
  Receipt Date: 20090429
  Transmission Date: 20091009
  Serious: Yes (Hospitalization)
  Sender: FDA-Public Use
  Company Number: BR-JNJFOC-20090500105

PATIENT
  Age: 8 Year
  Sex: Male
  Weight: 43 kg

DRUGS (5)
  1. REMICADE [Suspect]
     Indication: ANAL FISTULA
     Route: 042
  2. REMICADE [Suspect]
     Indication: CROHN'S DISEASE
     Dosage: 1ST AND 2ND INFUSION IN MAR-2009
     Route: 042
  3. CORTICOSTEROID [Concomitant]
  4. MESALAZINE [Concomitant]
  5. METRONIDAZOLE [Concomitant]

REACTIONS (4)
  - ANAPHYLACTIC REACTION [None]
  - CONVULSION [None]
  - HYPERTENSION [None]
  - INFUSION RELATED REACTION [None]
